FAERS Safety Report 7014729-2 (Version None)
Quarter: 2010Q3

REPORT INFORMATION
  Report Type: 
  Country: None (occurrence: None)
  Receive Date: 20100927
  Receipt Date: 20100915
  Transmission Date: 20110219
  Serious: Yes (Other)
  Sender: FDA-Public Use
  Company Number: PHHY2010RS43775

PATIENT
  Age: 38 Year
  Sex: Female

DRUGS (5)
  1. TEGRETOL-XR [Suspect]
     Dosage: 600 MG
     Route: 048
  2. TEGRETOL-XR [Suspect]
     Dosage: 500 MG DAILY
     Route: 048
  3. VERAPAMIL [Concomitant]
  4. VENLAFAXINE HCL [Concomitant]
  5. BROMERGON [Concomitant]
     Dosage: UNK

REACTIONS (3)
  - CAESAREAN SECTION [None]
  - DRUG EXPOSURE DURING PREGNANCY [None]
  - PREMATURE LABOUR [None]
